FAERS Safety Report 5241300-5 (Version None)
Quarter: 2007Q1

REPORT INFORMATION
  Report Type: 
  Country: None (occurrence: None)
  Receive Date: 20070220
  Receipt Date: 20070209
  Transmission Date: 20070707
  Serious: Yes (Hospitalization)
  Sender: FDA-Public Use
  Company Number: DE-JNJFOC-20070106141

PATIENT
  Sex: Male
  Weight: 11 kg

DRUGS (1)
  1. RISPERDAL [Suspect]
     Indication: ACCIDENTAL EXPOSURE
     Dosage: PATIENT TOOK 1-2 TABLET
     Route: 048

REACTIONS (2)
  - ACCIDENTAL EXPOSURE [None]
  - FATIGUE [None]
